FAERS Safety Report 16485036 (Version 5)
Quarter: 2021Q1

REPORT INFORMATION
  Report Type: Spontaneous
  Country: AT (occurrence: AT)
  Receive Date: 20190627
  Receipt Date: 20210121
  Transmission Date: 20210419
  Serious: Yes (Hospitalization)
  Sender: FDA-Public Use
  Company Number: AT-OTSUKA-2019_023976

PATIENT
  Age: 49 Year
  Sex: Male
  Weight: 100 kg

DRUGS (6)
  1. ABILIFY MAINTENA [Suspect]
     Active Substance: ARIPIPRAZOLE
     Indication: DRUG ABUSE
     Dosage: 400 MG, UNK
     Route: 030
     Dates: start: 20180329, end: 20180524
  2. ABILIFY [Suspect]
     Active Substance: ARIPIPRAZOLE
     Indication: SCHIZOAFFECTIVE DISORDER
     Dosage: 5 MG, UNK
     Route: 048
     Dates: start: 201806
  3. ABILIFY MAINTENA [Suspect]
     Active Substance: ARIPIPRAZOLE
     Indication: ALCOHOL ABUSE
     Dosage: 550 MG, (1X400MG AND HALF 300MG)
     Route: 030
     Dates: start: 20180621
  4. DEPAKINE [Suspect]
     Active Substance: VALPROATE SODIUM
     Indication: ANAMNESTIC REACTION
     Dosage: 1500 MG, QD
     Route: 065
     Dates: start: 20190424, end: 20190619
  5. DEPAKINE [Suspect]
     Active Substance: VALPROATE SODIUM
     Dosage: 500 MG, UNK
     Route: 065
  6. DEPAKINE [Suspect]
     Active Substance: VALPROATE SODIUM
     Indication: SCHIZOAFFECTIVE DISORDER
     Dosage: 1000 MG, UNK
     Route: 065
     Dates: start: 201906

REACTIONS (7)
  - Biliary tract disorder [Unknown]
  - Drug ineffective [Unknown]
  - Anamnestic reaction [Unknown]
  - Antipsychotic drug level decreased [Not Recovered/Not Resolved]
  - Overdose [Unknown]
  - Dysphagia [Unknown]
  - Product use in unapproved indication [Unknown]

NARRATIVE: CASE EVENT DATE: 20180409
